FAERS Safety Report 8539086-1 (Version None)
Quarter: 2012Q3

REPORT INFORMATION
  Report Type: 
  Country: None (occurrence: None)
  Receive Date: 20120713
  Receipt Date: 20120702
  Transmission Date: 20120928
  Serious: Yes (Other)
  Sender: FDA-Public Use
  Company Number: KAD201207-000362

PATIENT
  Age: 57 Year
  Sex: Female

DRUGS (3)
  1. PEGASYS [Suspect]
     Indication: HEPATITIS C
  2. VICTRELIS [Suspect]
     Indication: HEPATITIS C
     Dosage: 800 MG, CAPSULE, EVERY 8 HOURS, ORAL
     Route: 048
     Dates: start: 20120501
  3. RIBAVIRIN [Suspect]
     Indication: HEPATITIS C

REACTIONS (5)
  - HOMICIDAL IDEATION [None]
  - HALLUCINATION, AUDITORY [None]
  - SUICIDAL IDEATION [None]
  - HALLUCINATION, VISUAL [None]
  - INSOMNIA [None]
